FAERS Safety Report 7940014-8 (Version None)
Quarter: 2011Q4

REPORT INFORMATION
  Report Type: 
  Country: None (occurrence: None)
  Receive Date: 20111125
  Receipt Date: 20111121
  Transmission Date: 20120403
  Serious: Yes (Other)
  Sender: FDA-Public Use
  Company Number: US-PFIZER INC-2011237154

PATIENT
  Sex: Female

DRUGS (1)
  1. MEDROXYPROGESTERONE ACETATE [Suspect]
     Indication: CONTRACEPTION
     Dosage: 150 MG, EVERY 12 WEEKS
     Route: 030
     Dates: start: 20110127, end: 20110730

REACTIONS (2)
  - UNINTENDED PREGNANCY [None]
  - DRUG INEFFECTIVE [None]
